FAERS Safety Report 5192900-2 (Version None)
Quarter: 2006Q4

REPORT INFORMATION
  Report Type: 
  Country: None (occurrence: None)
  Receive Date: 20061228
  Receipt Date: 20060209
  Transmission Date: 20070319
  Serious: No
  Sender: FDA-Public Use
  Company Number: US-GLAXOSMITHKLINE-A0593077A

PATIENT
  Age: 53 Year
  Sex: Male

DRUGS (1)
  1. FLONASE [Suspect]
     Dosage: 2SPR TWICE PER DAY
     Route: 045
     Dates: start: 20051215, end: 20060301

REACTIONS (7)
  - ADVERSE EVENT [None]
  - DRUG INEFFECTIVE [None]
  - EAR CONGESTION [None]
  - EPISTAXIS [None]
  - EUSTACHIAN TUBE DYSFUNCTION [None]
  - NASAL DRYNESS [None]
  - RHINITIS ALLERGIC [None]
